FAERS Safety Report 4840106-6 (Version None)
Quarter: 2005Q4

REPORT INFORMATION
  Report Type: 
  Country: None (occurrence: None)
  Receive Date: 20051125
  Receipt Date: 20051117
  Transmission Date: 20060501
  Serious: No
  Sender: FDA-Public Use
  Company Number: S05-USA-03582-01

PATIENT
  Age: 55 Year
  Sex: Female

DRUGS (4)
  1. THYROID TAB [Suspect]
     Indication: HYPOTHYROIDISM
     Dosage: 60 MG BID PO
     Route: 048
     Dates: start: 20041101
  2. WELLBUTRIN [Concomitant]
  3. PEPCID [Concomitant]
  4. VITAMINS [Concomitant]

REACTIONS (4)
  - BLOOD THYROID STIMULATING HORMONE INCREASED [None]
  - BREAST CANCER FEMALE [None]
  - BREAST CANCER IN SITU [None]
  - THERAPEUTIC RESPONSE DECREASED [None]
